FAERS Safety Report 5646466-0 (Version None)
Quarter: 2008Q1

REPORT INFORMATION
  Report Type: 
  Country: None (occurrence: None)
  Receive Date: 20080227
  Receipt Date: 20080214
  Transmission Date: 20080703
  Serious: Yes (Hospitalization)
  Sender: FDA-Public Use
  Company Number: 08-000279

PATIENT
  Age: 80 Year
  Sex: Male

DRUGS (2)
  1. ERYC [Suspect]
     Dosage: ORAL
     Route: 048
  2. SIMVASTATIN [Suspect]
     Dosage: ORAL
     Route: 048

REACTIONS (4)
  - DRUG INTERACTION [None]
  - HAEMODIALYSIS [None]
  - RENAL FAILURE ACUTE [None]
  - RHABDOMYOLYSIS [None]
